FAERS Safety Report 16968385 (Version 5)
Quarter: 2020Q1

REPORT INFORMATION
  Report Type: Spontaneous
  Country: JP (occurrence: JP)
  Receive Date: 20191029
  Receipt Date: 20200203
  Transmission Date: 20200409
  Serious: Yes (Hospitalization)
  Sender: FDA-Public Use
  Company Number: JP-AMGEN-JPNSP2019177650

PATIENT
  Age: 79 Year
  Sex: Male
  Weight: 61.8 kg

DRUGS (13)
  1. CALCIUM LEVOFOLINATE [Suspect]
     Active Substance: LEVOLEUCOVORIN CALCIUM
     Indication: PRODUCT USED FOR UNKNOWN INDICATION
     Dosage: UNK
     Route: 065
     Dates: start: 2018
  2. ACUATIM [Concomitant]
     Active Substance: NADIFLOXACIN
     Indication: ACNE
     Dosage: UNK
     Route: 062
     Dates: start: 20190828, end: 20190913
  3. CALCIUM LEVOFOLINATE [Suspect]
     Active Substance: LEVOLEUCOVORIN CALCIUM
     Dosage: UNK
     Route: 065
     Dates: start: 20190828
  4. IRINOTECAN HYDROCHLORIDE. [Suspect]
     Active Substance: IRINOTECAN HYDROCHLORIDE
     Indication: PRODUCT USED FOR UNKNOWN INDICATION
     Dosage: UNK
     Route: 065
     Dates: start: 20190828
  5. FLUOROURACIL. [Suspect]
     Active Substance: FLUOROURACIL
     Dosage: UNK
     Route: 065
     Dates: start: 20180828
  6. MINOMYCIN [Concomitant]
     Active Substance: MINOCYCLINE HYDROCHLORIDE
     Indication: ACNE
     Dosage: 200 MILLIGRAM, BID
     Route: 048
     Dates: start: 20190828, end: 20190913
  7. HIRUDOID [Concomitant]
     Active Substance: GLYCOSAMINOGLYCANS
     Indication: ACNE
     Dosage: UNK
     Route: 062
     Dates: start: 20190828, end: 20190913
  8. FLUOROURACIL. [Suspect]
     Active Substance: FLUOROURACIL
     Indication: PRODUCT USED FOR UNKNOWN INDICATION
     Dosage: UNK
     Route: 065
     Dates: start: 2018
  9. MYSER [DIFLUPREDNATE] [Concomitant]
     Indication: ACNE
     Dosage: UNK
     Route: 062
     Dates: start: 20190828, end: 20190913
  10. VECTIBIX [Suspect]
     Active Substance: PANITUMUMAB
     Indication: COLON CANCER
     Dosage: 400 MILLIGRAM/KILOGRAM, Q2WK
     Route: 041
     Dates: start: 20190828, end: 20190913
  11. FLUOROURACIL. [Suspect]
     Active Substance: FLUOROURACIL
     Dosage: UNK
     Route: 065
     Dates: start: 2018
  12. CALCIUM LEVOFOLINATE [Suspect]
     Active Substance: LEVOLEUCOVORIN CALCIUM
     Dosage: UNK
     Route: 065
     Dates: start: 2018
  13. LOCOID [Concomitant]
     Active Substance: HYDROCORTISONE BUTYRATE
     Indication: ACNE
     Dosage: UNK
     Route: 062
     Dates: start: 20190828, end: 20190913

REACTIONS (3)
  - Dermatitis acneiform [Recovering/Resolving]
  - Hypophagia [Recovered/Resolved]
  - Gastroduodenal ulcer [Recovering/Resolving]

NARRATIVE: CASE EVENT DATE: 20190911
